FAERS Safety Report 6803731-9 (Version None)
Quarter: 2010Q2

REPORT INFORMATION
  Report Type: 
  Country: None (occurrence: None)
  Receive Date: 20100628
  Receipt Date: 20100622
  Transmission Date: 20101027
  Serious: Yes (Other)
  Sender: FDA-Public Use
  Company Number: BE-ELI_LILLY_AND_COMPANY-BE201006006051

PATIENT
  Age: 62 Year
  Sex: Male

DRUGS (1)
  1. BYETTA [Suspect]
     Dosage: 10 UG, UNK
     Route: 065
     Dates: start: 20100301

REACTIONS (2)
  - SYNOVIAL CYST [None]
  - WHITE BLOOD CELL COUNT INCREASED [None]
